FAERS Safety Report 16950336 (Version 1)
Quarter: 2019Q4

REPORT INFORMATION
  Report Type: Spontaneous
  Country: US (occurrence: US)
  Receive Date: 20190831
  Receipt Date: 20190831
  Transmission Date: 20200122
  Serious: Yes (Hospitalization)
  Sender: FDA-Public Use
  Company Number: None

PATIENT
  Sex: Female
  Weight: 73.5 kg

DRUGS (1)
  1. ARMODAFINIL. [Suspect]
     Active Substance: ARMODAFINIL
     Dates: end: 20160919

REACTIONS (8)
  - Nausea [None]
  - Nervous system disorder [None]
  - Vomiting [None]
  - Constipation [None]
  - Oesophageal stenosis [None]
  - Diarrhoea [None]
  - Dehydration [None]
  - Hypophagia [None]
